FAERS Safety Report 17225800 (Version 1)
Quarter: 2020Q1

REPORT INFORMATION
  Report Type: Spontaneous
  Country: US (occurrence: US)
  Receive Date: 20200102
  Receipt Date: 20200102
  Transmission Date: 20200409
  Serious: Yes (Hospitalization)
  Sender: FDA-Public Use
  Company Number: US-ASTRAZENECA-2020SE00203

PATIENT
  Sex: Male

DRUGS (9)
  1. IPRATROPIUM [Concomitant]
     Active Substance: IPRATROPIUM
  2. LEVABUTEROL [Concomitant]
  3. LASIX [Concomitant]
     Active Substance: FUROSEMIDE
  4. OEPRAZOLE [Concomitant]
  5. TRACLEER [Concomitant]
     Active Substance: BOSENTAN
  6. LASIX [Concomitant]
     Active Substance: FUROSEMIDE
  7. ERY TAB [Concomitant]
  8. SYNAGIS [Suspect]
     Active Substance: PALIVIZUMAB
     Indication: RESPIRATORY SYNCYTIAL VIRUS INFECTION
     Route: 030
  9. CEFDINIR. [Concomitant]
     Active Substance: CEFDINIR

REACTIONS (1)
  - Respiratory syncytial virus infection [Unknown]
